FAERS Safety Report 7304942-9 (Version None)
Quarter: 2011Q1

REPORT INFORMATION
  Report Type: 
  Country: None (occurrence: None)
  Receive Date: 20110222
  Receipt Date: 20110215
  Transmission Date: 20110831
  Serious: Yes (Other)
  Sender: FDA-Public Use
  Company Number: US-SANOFI-AVENTIS-2011SA010272

PATIENT
  Age: 69 Year
  Sex: Male

DRUGS (2)
  1. AMARYL [Suspect]
     Route: 065
     Dates: start: 20110101
  2. AMARYL [Suspect]
     Indication: DIABETES MELLITUS
     Route: 065
     Dates: end: 20080101

REACTIONS (2)
  - PANCREATITIS [None]
  - MUSCULOSKELETAL CHEST PAIN [None]
